FAERS Safety Report 8988958 (Version 2)
Quarter: 2013Q3

REPORT INFORMATION
  Report Type: Report from Study
  Country: MX (occurrence: MX)
  Receive Date: 20121228
  Receipt Date: 20130812
  Transmission Date: 20140515
  Serious: Yes (Hospitalization, Other)
  Sender: FDA-Public Use
  Company Number: PHHY2012MX120189

PATIENT
  Age: 86 Year
  Sex: Male

DRUGS (8)
  1. EXFORGE [Suspect]
     Indication: HYPERTENSION
     Dosage: 1 DF (160/5MG) DAILY
  2. EXFORGE [Suspect]
     Indication: BLOOD CHOLESTEROL ABNORMAL
  3. EXFORGE [Suspect]
     Indication: OFF LABEL USE
  4. EXELON PATCH [Suspect]
     Indication: MEMORY IMPAIRMENT
     Dosage: 4.6 MG, ONE PATCH DAILY
     Route: 062
     Dates: start: 20121224
  5. EXELON PATCH [Suspect]
     Indication: PROPHYLAXIS
     Dosage: 9.5 MG, ONE PATCH DAILY
     Route: 062
  6. AKATINOL MEMANTINA [Concomitant]
     Indication: NERVOUS SYSTEM DISORDER
     Dosage: 20 MG, DAILY
     Dates: start: 2011
  7. GENTEAL                            /03186201/ [Concomitant]
     Dosage: 1 DF, UNK
     Dates: start: 201103
  8. PRIMIER [Concomitant]
     Indication: GASTROINTESTINAL DISORDER
     Dosage: 1 DF, DAILY
     Dates: start: 201307

REACTIONS (9)
  - Fall [Recovering/Resolving]
  - Blood sodium decreased [Recovering/Resolving]
  - Osmotic demyelination syndrome [Recovering/Resolving]
  - Muscular weakness [Recovering/Resolving]
  - Tremor [Recovering/Resolving]
  - Cerebral arteriosclerosis [Not Recovered/Not Resolved]
  - Arterial occlusive disease [Recovering/Resolving]
  - Blood cholesterol increased [Recovering/Resolving]
  - Cardiac disorder [Not Recovered/Not Resolved]
